FAERS Safety Report 5699190-2 (Version None)
Quarter: 2008Q2

REPORT INFORMATION
  Report Type: 
  Country: None (occurrence: None)
  Receive Date: 20080407
  Receipt Date: 20080324
  Transmission Date: 20081010
  Serious: Yes (Hospitalization)
  Sender: FDA-Public Use
  Company Number: 230023J07USA

PATIENT
  Age: 53 Year
  Sex: Female
  Weight: 55.3388 kg

DRUGS (7)
  1. REBIF [Suspect]
     Indication: MULTIPLE SCLEROSIS
     Dosage: 44 MCG, 3 IN 1 WEEKS, SUBCUTANEOUS; 44 MCG, 3 IN 1 WEEKS, SUBCUTANEOUS
     Route: 058
     Dates: start: 20051128, end: 20071001
  2. REBIF [Suspect]
     Indication: MULTIPLE SCLEROSIS
     Dosage: 44 MCG, 3 IN 1 WEEKS, SUBCUTANEOUS; 44 MCG, 3 IN 1 WEEKS, SUBCUTANEOUS
     Route: 058
     Dates: start: 20071001
  3. BACLOFEN [Concomitant]
  4. DIAZEPAM [Concomitant]
  5. POTASSIUM (POTASSIUM /00031401/) [Concomitant]
  6. CLONAZEPAM [Concomitant]
  7. ANTIBIOTIC (ANTIBIOTICS) [Concomitant]

REACTIONS (3)
  - CYSTITIS [None]
  - PNEUMONIA [None]
  - PYREXIA [None]
